FAERS Safety Report 5998010-6 (Version None)
Quarter: 2008Q4

REPORT INFORMATION
  Report Type: 
  Country: None (occurrence: None)
  Receive Date: 20081211
  Receipt Date: 20081125
  Transmission Date: 20090506
  Serious: Yes (Death, Hospitalization)
  Sender: FDA-Public Use
  Company Number: KV200800547

PATIENT
  Age: 60 Year
  Sex: Male
  Weight: 88.4 kg

DRUGS (4)
  1. ISOSORBIDE MONONITRATE       SLOW RELEASE [Suspect]
     Dosage: 30 MG, QD, ORAL
     Route: 048
     Dates: end: 20081001
  2. METFORMIN HCL [Concomitant]
  3. ATENOLOL [Concomitant]
  4. LOVASTATIN [Concomitant]

REACTIONS (5)
  - ACUTE MYOCARDIAL INFARCTION [None]
  - CARDIAC FAILURE CONGESTIVE [None]
  - CHEST DISCOMFORT [None]
  - CORONARY ARTERY DISEASE [None]
  - PRODUCT QUALITY ISSUE [None]
